FAERS Safety Report 24107010 (Version 1)
Quarter: 2024Q3

REPORT INFORMATION
  Report Type: Report from Study
  Country: ZA (occurrence: ZA)
  Receive Date: 20240717
  Receipt Date: 20240717
  Transmission Date: 20241017
  Serious: Yes (Hospitalization)
  Sender: ABBVIE
  Company Number: ZA-ABBOTT-2024A-1384323

PATIENT
  Age: 53 Year
  Sex: Male

DRUGS (16)
  1. FENOFIBRATE [Suspect]
     Active Substance: FENOFIBRATE
     Indication: Blood cholesterol abnormal
     Dosage: 200 MG TAKE ONE TABLET ONCE A DAY
     Route: 048
  2. ECOTRIN [Concomitant]
     Active Substance: ASPIRIN
     Indication: Thrombosis prophylaxis
     Dosage: 81 MG TAKE ONE TABLET ONCE A DAY
     Route: 048
  3. CLOBAZAM [Concomitant]
     Active Substance: CLOBAZAM
     Indication: Anxiety
     Dosage: 10 MG TAKE ONE TABLET ONCE A DAY
     Route: 048
  4. PERINDOPRIL [Concomitant]
     Active Substance: PERINDOPRIL
     Indication: Hypertension
     Dosage: 10 MG TAKE ONE TABLET ONCE A DAY
     Route: 048
  5. ADCO NAPACOD [Concomitant]
     Indication: Product used for unknown indication
     Dosage: TAKE ONE TABLET THREE TIMES A DAY
     Route: 048
  6. AUSTIFEN [Concomitant]
     Indication: Product used for unknown indication
     Dosage: 400 MG TAKE ONE TABLET THREE TIMES A DAY
     Route: 048
  7. Minex [Concomitant]
     Indication: Product used for unknown indication
     Dosage: 15 MG TAKE ONE CAPSULE IN DAILY
     Route: 048
  8. Minex [Concomitant]
     Indication: Product used for unknown indication
     Dosage: 30 MG TAKE ONE CAPSULE IN THE MORNING
     Route: 048
  9. DIAZEPAM [Concomitant]
     Active Substance: DIAZEPAM
     Indication: Anxiety
     Dosage: 5 MG TAKE TWO TABLETS DAILY
     Route: 048
  10. ROSUVASTATIN [Concomitant]
     Active Substance: ROSUVASTATIN
     Indication: Blood cholesterol abnormal
     Dosage: 5 MG TAKE A TABLET OF AT NIGHT
     Route: 048
  11. AMITRIPTYLINE HYDROCHLORIDE [Concomitant]
     Active Substance: AMITRIPTYLINE HYDROCHLORIDE
     Indication: Depression
     Dosage: 25 MG TAKE ONE TABLET IN THE EVENING
     Route: 048
  12. AMITRIPTYLINE [Concomitant]
     Active Substance: AMITRIPTYLINE
     Indication: Depression
     Dosage: 25 MG TAKE A TABLET OF AT NIGHT
     Route: 048
  13. Synaleve [Concomitant]
     Indication: Pain
     Dosage: TAKE TWO CAPSULES FOUR TIMES A DAY
     Route: 048
  14. ILIADIN [Concomitant]
     Indication: Product used for unknown indication
     Dosage: 0.5 MG AS PRESCRIBED
  15. CELECOXIB [Concomitant]
     Active Substance: CELECOXIB
     Indication: Pain
     Dosage: 100 MG TAKE ONE CAPSULE ONCE A DAY
     Route: 048
  16. CELECOXIB [Concomitant]
     Active Substance: CELECOXIB
     Indication: Pain
     Dosage: 200 MG ONCE TWICE A DAY
     Route: 048

REACTIONS (1)
  - Hip arthroplasty [Unknown]
